FAERS Safety Report 7376341-5 (Version None)
Quarter: 2011Q1

REPORT INFORMATION
  Report Type: 
  Country: None (occurrence: None)
  Receive Date: 20110325
  Receipt Date: 20110323
  Transmission Date: 20110831
  Serious: Yes (Other)
  Sender: FDA-Public Use
  Company Number: CL-ROXANE LABORATORIES, INC.-2011-DE-01948GD

PATIENT
  Age: 75 Year
  Sex: Female

DRUGS (1)
  1. SERTRALINE [Suspect]
     Indication: DEPRESSION
     Dosage: 25 MG DAILY FOR 2 DAYS AND 50 MG DAILY THEREAFTER

REACTIONS (8)
  - DYSTONIA [None]
  - NEUROLEPTIC MALIGNANT SYNDROME [None]
  - BRUXISM [None]
  - BLEPHAROSPASM [None]
  - DYSARTHRIA [None]
  - DYSPHAGIA [None]
  - PARKINSONISM [None]
  - MUSCLE RIGIDITY [None]
